FAERS Safety Report 5587681-4 (Version None)
Quarter: 2008Q1

REPORT INFORMATION
  Report Type: 
  Country: None (occurrence: None)
  Receive Date: 20080108
  Receipt Date: 20071226
  Transmission Date: 20080703
  Serious: Yes (Death)
  Sender: FDA-Public Use
  Company Number: 2007BI022258

PATIENT
  Age: 62 Year
  Sex: Male

DRUGS (1)
  1. TYSABRI [Suspect]
     Indication: MULTIPLE SCLEROSIS
     Dosage: 300 MG; QM; IV
     Route: 042
     Dates: start: 20060816, end: 20070409

REACTIONS (5)
  - ACCIDENTAL DEATH [None]
  - ASPHYXIA [None]
  - CEREBRAL ISCHAEMIA [None]
  - FALL [None]
  - TREATMENT NONCOMPLIANCE [None]
